FAERS Safety Report 6023844-1 (Version None)
Quarter: 2008Q4

REPORT INFORMATION
  Report Type: 
  Country: None (occurrence: None)
  Receive Date: 20081230
  Receipt Date: 20081216
  Transmission Date: 20090506
  Serious: Yes (Other)
  Sender: FDA-Public Use
  Company Number: JP-PFIZER INC-2008151507

PATIENT

DRUGS (1)
  1. ALDACTONE [Suspect]
     Dosage: UNK
     Dates: end: 20081105

REACTIONS (2)
  - EOSINOPHIL COUNT INCREASED [None]
  - RASH [None]
